FAERS Safety Report 5113367-6 (Version None)
Quarter: 2006Q3

REPORT INFORMATION
  Report Type: 
  Country: None (occurrence: None)
  Receive Date: 20060920
  Receipt Date: 20060905
  Transmission Date: 20061208
  Serious: Yes (Other)
  Sender: FDA-Public Use
  Company Number: 2006S1008360

PATIENT
  Age: 43 Year
  Sex: Male
  Weight: 117.4816 kg

DRUGS (5)
  1. FENTANYL TRANSDERMAL SYSTEM [Suspect]
     Indication: ARTHRALGIA
     Dosage: 100 UG/HR; Q3D; TDER
     Route: 062
     Dates: start: 20060701
  2. FENTANYL TRANSDERMAL SYSTEM [Suspect]
     Indication: BACK PAIN
     Dosage: 100 UG/HR; Q3D; TDER
     Route: 062
     Dates: start: 20060701
  3. FENTANYL TRANSDERMAL SYSTEM [Suspect]
     Indication: MUSCULOSKELETAL PAIN
     Dosage: 100 UG/HR; Q3D; TDER
     Route: 062
     Dates: start: 20060701
  4. FENTANYL TRANSDERMAL SYSTEM [Suspect]
     Indication: PAIN
     Dosage: 100 UG/HR; Q3D; TDER
     Route: 062
     Dates: start: 20060701
  5. QUETIAPINE [Concomitant]

REACTIONS (4)
  - DRUG INEFFECTIVE [None]
  - DRUG WITHDRAWAL SYNDROME [None]
  - FORMICATION [None]
  - TREMOR [None]
